FAERS Safety Report 14798708 (Version 1)
Quarter: 2018Q2

REPORT INFORMATION
  Report Type: Report from Study
  Country: US (occurrence: US)
  Receive Date: 20180424
  Receipt Date: 20180424
  Transmission Date: 20180711
  Serious: Yes (Hospitalization)
  Sender: FDA-Public Use
  Company Number: US-ASTRAZENECA-2016SE76735

PATIENT
  Age: 66 Year
  Sex: Female
  Weight: 61.3 kg

DRUGS (54)
  1. ACALABRUTINIB. [Suspect]
     Active Substance: ACALABRUTINIB
     Indication: NON-SMALL CELL LUNG CANCER
     Route: 048
     Dates: start: 20160415
  2. CALCIUM CARBONATE W/VITAMIN D3 [Concomitant]
     Indication: SUPPLEMENTATION THERAPY
     Dosage: UNK, TWO TIMES A DAY
     Route: 048
     Dates: start: 2006
  3. LIDOCAINE?PRILOCAINE [Concomitant]
     Indication: PAIN
     Dosage: 1 UNK, PRN
     Route: 061
     Dates: start: 20150220
  4. DEXAMETHASONE. [Concomitant]
     Active Substance: DEXAMETHASONE
     Indication: ALANINE AMINOTRANSFERASE INCREASED
     Route: 048
     Dates: start: 20160601, end: 20160603
  5. DEXAMETHASONE. [Concomitant]
     Active Substance: DEXAMETHASONE
     Indication: ASPARTATE AMINOTRANSFERASE INCREASED
     Route: 048
     Dates: start: 20160607, end: 20160629
  6. ACALABRUTINIB. [Suspect]
     Active Substance: ACALABRUTINIB
     Indication: NON-SMALL CELL LUNG CANCER
     Route: 048
     Dates: start: 20160410
  7. ACALABRUTINIB. [Suspect]
     Active Substance: ACALABRUTINIB
     Indication: NON-SMALL CELL LUNG CANCER
     Route: 048
     Dates: start: 20160422
  8. HYDROCODONE?CHLORPHENIRAMINE [Concomitant]
     Indication: COUGH
     Route: 048
     Dates: start: 20151201
  9. IBUPROFEN. [Concomitant]
     Active Substance: IBUPROFEN
     Indication: RASH
     Dosage: 200.0MG AS REQUIRED
     Route: 048
     Dates: start: 20151223, end: 20160302
  10. IBUPROFEN. [Concomitant]
     Active Substance: IBUPROFEN
     Indication: RASH
     Dosage: 200.0MG AS REQUIRED
     Route: 048
     Dates: start: 20160302
  11. IBUPROFEN. [Concomitant]
     Active Substance: IBUPROFEN
     Indication: MUSCULOSKELETAL CHEST PAIN
     Dosage: 200.0MG AS REQUIRED
     Route: 048
     Dates: start: 20160302
  12. ACALABRUTINIB. [Suspect]
     Active Substance: ACALABRUTINIB
     Indication: NON-SMALL CELL LUNG CANCER
     Route: 048
     Dates: start: 20160408
  13. ACALABRUTINIB. [Suspect]
     Active Substance: ACALABRUTINIB
     Indication: NON-SMALL CELL LUNG CANCER
     Route: 048
     Dates: start: 20160414
  14. ACALABRUTINIB. [Suspect]
     Active Substance: ACALABRUTINIB
     Indication: NON-SMALL CELL LUNG CANCER
     Route: 048
     Dates: start: 20160420
  15. PEMBROLIZUMAB. [Suspect]
     Active Substance: PEMBROLIZUMAB
     Indication: NON-SMALL CELL LUNG CANCER
     Route: 042
     Dates: start: 20160217
  16. IBUPROFEN. [Concomitant]
     Active Substance: IBUPROFEN
     Indication: MUSCULOSKELETAL CHEST PAIN
     Dosage: 200.0MG AS REQUIRED
     Route: 048
     Dates: start: 20160405
  17. PSYLLIUM SEEDS WITH SUGAR [Concomitant]
     Indication: SUPPLEMENTATION THERAPY
     Dosage: UNK, TWO TIMES A DAY
     Route: 048
     Dates: start: 2011
  18. ONDANSETRON [Concomitant]
     Active Substance: ONDANSETRON
     Indication: NAUSEA
     Route: 048
     Dates: start: 20150128
  19. LORATADINE. [Concomitant]
     Active Substance: LORATADINE
     Indication: RASH
     Dosage: 1.0DF AS REQUIRED
     Route: 048
     Dates: start: 20160503, end: 20160517
  20. DEXAMETHASONE. [Concomitant]
     Active Substance: DEXAMETHASONE
     Indication: ASPARTATE AMINOTRANSFERASE INCREASED
     Route: 048
     Dates: start: 20160607, end: 20160629
  21. IBUPROFEN. [Concomitant]
     Active Substance: IBUPROFEN
     Indication: PAIN PROPHYLAXIS
     Dosage: 200.0MG AS REQUIRED
     Route: 048
     Dates: start: 20160405
  22. LORATADINE. [Concomitant]
     Active Substance: LORATADINE
     Indication: LIP SWELLING
     Dosage: 1.0DF AS REQUIRED
     Route: 048
     Dates: start: 20160503, end: 20160517
  23. DEXAMETHASONE. [Concomitant]
     Active Substance: DEXAMETHASONE
     Indication: ASPARTATE AMINOTRANSFERASE INCREASED
     Route: 048
     Dates: start: 20160601, end: 20160603
  24. DEXAMETHASONE. [Concomitant]
     Active Substance: DEXAMETHASONE
     Indication: ASPARTATE AMINOTRANSFERASE INCREASED
     Route: 048
     Dates: start: 20160603, end: 20160607
  25. ACALABRUTINIB. [Suspect]
     Active Substance: ACALABRUTINIB
     Indication: NON-SMALL CELL LUNG CANCER
     Route: 048
     Dates: start: 20160407
  26. ACALABRUTINIB. [Suspect]
     Active Substance: ACALABRUTINIB
     Indication: NON-SMALL CELL LUNG CANCER
     Route: 048
     Dates: start: 20160416
  27. COLECALCIFEROL [Concomitant]
     Active Substance: CHOLECALCIFEROL
     Indication: SUPPLEMENTATION THERAPY
     Route: 048
     Dates: start: 201512
  28. HYDROCORTISONE. [Concomitant]
     Active Substance: HYDROCORTISONE
     Indication: DRY SKIN
     Route: 061
     Dates: start: 20150904, end: 20160202
  29. LORAZEPAM. [Concomitant]
     Active Substance: LORAZEPAM
     Indication: NAUSEA
     Route: 048
     Dates: start: 20150220
  30. DEXAMETHASONE. [Concomitant]
     Active Substance: DEXAMETHASONE
     Indication: ALANINE AMINOTRANSFERASE INCREASED
     Route: 048
     Dates: start: 20160607, end: 20160629
  31. ACALABRUTINIB. [Suspect]
     Active Substance: ACALABRUTINIB
     Indication: NON-SMALL CELL LUNG CANCER
     Route: 048
     Dates: start: 20160411
  32. ACALABRUTINIB. [Suspect]
     Active Substance: ACALABRUTINIB
     Indication: NON-SMALL CELL LUNG CANCER
     Route: 048
     Dates: start: 20160419
  33. ACALABRUTINIB. [Suspect]
     Active Substance: ACALABRUTINIB
     Indication: NON-SMALL CELL LUNG CANCER
     Route: 048
     Dates: start: 20160423
  34. HYDROCORTISONE. [Concomitant]
     Active Substance: HYDROCORTISONE
     Indication: RASH
     Route: 061
     Dates: start: 20150904, end: 20160202
  35. IBUPROFEN. [Concomitant]
     Active Substance: IBUPROFEN
     Indication: PAIN PROPHYLAXIS
     Dosage: 200.0MG AS REQUIRED
     Route: 048
     Dates: start: 20151223, end: 20160302
  36. IBUPROFEN. [Concomitant]
     Active Substance: IBUPROFEN
     Indication: MUSCULOSKELETAL CHEST PAIN
     Dosage: 200.0MG AS REQUIRED
     Route: 048
     Dates: start: 20151223, end: 20160302
  37. IBUPROFEN. [Concomitant]
     Active Substance: IBUPROFEN
     Indication: PAIN PROPHYLAXIS
     Dosage: 200.0MG AS REQUIRED
     Route: 048
     Dates: start: 20160302
  38. FISH OIL [Concomitant]
     Active Substance: FISH OIL
     Indication: SUPPLEMENTATION THERAPY
     Route: 048
     Dates: start: 2006
  39. PROCHLORPERAZINE. [Concomitant]
     Active Substance: PROCHLORPERAZINE
     Indication: NAUSEA
     Route: 048
     Dates: start: 20150220
  40. BENZONATATE. [Concomitant]
     Active Substance: BENZONATATE
     Indication: COUGH
     Route: 048
     Dates: start: 20160330
  41. DEXAMETHASONE. [Concomitant]
     Active Substance: DEXAMETHASONE
     Indication: ALANINE AMINOTRANSFERASE INCREASED
     Route: 048
     Dates: start: 20160603, end: 20160607
  42. DEXAMETHASONE. [Concomitant]
     Active Substance: DEXAMETHASONE
     Indication: ALANINE AMINOTRANSFERASE INCREASED
     Route: 048
     Dates: start: 20160607, end: 20160629
  43. LOMOTIL [Concomitant]
     Active Substance: ATROPINE SULFATE\DIPHENOXYLATE HYDROCHLORIDE
     Indication: DIARRHOEA
     Route: 048
     Dates: start: 20160601
  44. ACALABRUTINIB. [Suspect]
     Active Substance: ACALABRUTINIB
     Indication: NON-SMALL CELL LUNG CANCER
     Route: 048
     Dates: start: 20160409
  45. ACALABRUTINIB. [Suspect]
     Active Substance: ACALABRUTINIB
     Indication: NON-SMALL CELL LUNG CANCER
     Route: 048
     Dates: start: 20160421
  46. HYDROCORTISONE. [Concomitant]
     Active Substance: HYDROCORTISONE
     Indication: DRY SKIN
     Route: 061
     Dates: start: 20160302
  47. IBUPROFEN. [Concomitant]
     Active Substance: IBUPROFEN
     Indication: RASH
     Dosage: 200.0MG AS REQUIRED
     Route: 048
     Dates: start: 20160405
  48. ONDANSETRON [Concomitant]
     Active Substance: ONDANSETRON
     Indication: VOMITING
     Route: 048
     Dates: start: 20150128
  49. IMODIUM AD [Concomitant]
     Active Substance: LOPERAMIDE HYDROCHLORIDE
     Indication: DIARRHOEA
     Dosage: 1.0DF AS REQUIRED
     Route: 048
     Dates: start: 20160531
  50. ACALABRUTINIB. [Suspect]
     Active Substance: ACALABRUTINIB
     Indication: NON-SMALL CELL LUNG CANCER
     Route: 048
     Dates: start: 20160412
  51. ACALABRUTINIB. [Suspect]
     Active Substance: ACALABRUTINIB
     Indication: NON-SMALL CELL LUNG CANCER
     Route: 048
     Dates: start: 20160413
  52. ACALABRUTINIB. [Suspect]
     Active Substance: ACALABRUTINIB
     Indication: NON-SMALL CELL LUNG CANCER
     Route: 048
     Dates: start: 20160417
  53. ACALABRUTINIB. [Suspect]
     Active Substance: ACALABRUTINIB
     Indication: NON-SMALL CELL LUNG CANCER
     Route: 048
     Dates: start: 20160418
  54. HYDROCORTISONE. [Concomitant]
     Active Substance: HYDROCORTISONE
     Indication: RASH
     Route: 061
     Dates: start: 20160302

REACTIONS (1)
  - Pneumatosis intestinalis [Recovered/Resolved]

NARRATIVE: CASE EVENT DATE: 20160603
